FAERS Safety Report 16599147 (Version 1)
Quarter: 2019Q3

REPORT INFORMATION
  Report Type: Spontaneous
  Country: DK (occurrence: DK)
  Receive Date: 20190719
  Receipt Date: 20190719
  Transmission Date: 20191004
  Serious: Yes (Hospitalization, Other)
  Sender: FDA-Public Use
  Company Number: DK-PFIZER INC-2019293797

PATIENT
  Age: 62 Year
  Sex: Female

DRUGS (12)
  1. SALAZOPYRIN EN-TABS [Suspect]
     Active Substance: SULFASALAZINE
     Indication: RHEUMATOID ARTHRITIS
     Dosage: DOSE: VARYING
     Route: 048
     Dates: start: 2004
  2. IPRAMOL [Suspect]
     Active Substance: ALBUTEROL SULFATE\IPRATROPIUM BROMIDE
     Indication: CHRONIC OBSTRUCTIVE PULMONARY DISEASE
     Dosage: STRENGTH: 2.5+0.5 MG / CONTAINER. DOSE: VARYING
     Route: 055
  3. PREDNISOLONE. [Suspect]
     Active Substance: PREDNISOLONE
     Dosage: UNK
     Dates: start: 2004
  4. VERALOC [Concomitant]
     Indication: HEART RATE IRREGULAR
     Dosage: 200 MG, 1X/DAY
     Route: 048
     Dates: start: 20151030
  5. AMIODARONE HCL [Suspect]
     Active Substance: AMIODARONE HYDROCHLORIDE
     Indication: HEART RATE IRREGULAR
     Dosage: DOSE: VARYING
     Route: 048
     Dates: start: 2004
  6. SPIRIVA [Suspect]
     Active Substance: TIOTROPIUM BROMIDE MONOHYDRATE
     Indication: CHRONIC OBSTRUCTIVE PULMONARY DISEASE
     Dosage: 5 UG, 1X/DAY
     Route: 055
  7. BUFOMIX EASYHALER [Suspect]
     Active Substance: BUDESONIDE\FORMOTEROL FUMARATE
     Indication: ASTHMA
     Dosage: 2 DF, 1X/DAY (STRENGTH: 9-320 UG/DOSE)
     Route: 055
  8. TRAMADOL. [Concomitant]
     Active Substance: TRAMADOL
     Indication: PAIN
     Dosage: 100 MG, DAILY PLUS 50 MG AS NEEDED
     Route: 048
     Dates: start: 20151126
  9. ARAVA [Concomitant]
     Active Substance: LEFLUNOMIDE
     Indication: RHEUMATOID ARTHRITIS
     Dosage: 10 MG, 1X/DAY
     Route: 048
     Dates: start: 20151007
  10. TRAMADOL. [Concomitant]
     Active Substance: TRAMADOL
     Dosage: 50 MG, AS NEEDED
     Route: 048
     Dates: start: 20151126
  11. FUROSEMIDE. [Concomitant]
     Active Substance: FUROSEMIDE
     Indication: DIURETIC THERAPY
     Dosage: 40 MG, AS NEEDED
     Route: 048
     Dates: start: 20160915
  12. SPIRONE [Concomitant]
     Indication: DIURETIC THERAPY
     Dosage: 200 MG, 1X/DAY
     Route: 048
     Dates: start: 20151012

REACTIONS (9)
  - Dry mouth [Unknown]
  - Cardiac arrest [Unknown]
  - Pneumonia [Unknown]
  - Breast cancer [Unknown]
  - Tooth erosion [Unknown]
  - Tonsillitis [Unknown]
  - Pharyngitis [Unknown]
  - Oropharyngeal candidiasis [Unknown]
  - Dental caries [Unknown]

NARRATIVE: CASE EVENT DATE: 2011
